FAERS Safety Report 4968958-X (Version None)
Quarter: 2006Q2

REPORT INFORMATION
  Report Type: 
  Country: None (occurrence: None)
  Receive Date: 20060405
  Receipt Date: 20060330
  Transmission Date: 20061013
  Serious: Yes (Life-Threatening)
  Sender: FDA-Public Use
  Company Number: 21-732-2006-M0029

PATIENT
  Age: 68 Year
  Sex: Male

DRUGS (3)
  1. VANTAS [Suspect]
     Indication: PROSTATE CANCER METASTATIC
     Dosage: 50 MG/YEAR, SUBCUTANEOUS
     Route: 058
     Dates: start: 20051128
  2. XANAX [Concomitant]
  3. HYDROMORPHINE [Concomitant]

REACTIONS (10)
  - BONE PAIN [None]
  - CONVULSION [None]
  - DEPRESSION [None]
  - EPISTAXIS [None]
  - HOT FLUSH [None]
  - HYPERHIDROSIS [None]
  - INSOMNIA [None]
  - MUSCLE TWITCHING [None]
  - POLLAKIURIA [None]
  - VENTRICULAR EXTRASYSTOLES [None]
